FAERS Safety Report 16399065 (Version 1)
Quarter: 2019Q2

REPORT INFORMATION
  Report Type: Spontaneous
  Country: JP (occurrence: JP)
  Receive Date: 20190606
  Receipt Date: 20190606
  Transmission Date: 20190711
  Serious: Yes (Other)
  Sender: FDA-Public Use
  Company Number: JP-ELI_LILLY_AND_COMPANY-JP201906000274

PATIENT
  Age: 73 Year
  Sex: Male

DRUGS (4)
  1. GLUCOBAY [Concomitant]
     Active Substance: ACARBOSE
  2. METGLUCO [Concomitant]
     Active Substance: METFORMIN HYDROCHLORIDE
  3. TRULICITY [Suspect]
     Active Substance: DULAGLUTIDE
     Indication: TYPE 2 DIABETES MELLITUS
     Dosage: 0.75 MG, WEEKLY (1/W)
     Route: 058
  4. JARDIANCE [Concomitant]
     Active Substance: EMPAGLIFLOZIN

REACTIONS (1)
  - Taste disorder [Recovering/Resolving]

NARRATIVE: CASE EVENT DATE: 201610
